FAERS Safety Report 4349986-4 (Version None)
Quarter: 2004Q2

REPORT INFORMATION
  Report Type: 
  Country: None (occurrence: None)
  Receive Date: 20040428
  Receipt Date: 20040428
  Transmission Date: 20050107
  Serious: Yes (Hospitalization)
  Sender: FDA-Public Use
  Company Number: None

PATIENT
  Sex: Male

DRUGS (24)
  1. METOPROLOL TARTRATE [Suspect]
     Indication: ATRIAL FIBRILLATION
     Dosage: 25 MG BID ORAL
     Route: 048
  2. AMIODARONE HCL [Suspect]
     Indication: ATRIAL FIBRILLATION
     Dosage: 100 MG DAILY ORAL
     Route: 048
  3. FLUOXETINE [Concomitant]
  4. MAGNESIUM HYDROXIDE TAB [Concomitant]
  5. ATORVASTATIN [Concomitant]
  6. FINASTERIDE [Concomitant]
  7. ASPIRIN [Concomitant]
  8. VENLAFAXINE [Concomitant]
  9. TERAZOSIN HCL [Concomitant]
  10. MULTIVITAMIN WITH MINERALS [Concomitant]
  11. LORATADINE [Concomitant]
  12. LISINOPRIL [Concomitant]
  13. LEVOTHYROXINE [Concomitant]
  14. HYDROCHLOROTHIAZIDE [Concomitant]
  15. FOLIC ACID [Concomitant]
  16. CLOPIDOGREL [Concomitant]
  17. MORPHINE [Concomitant]
  18. OXYCODONE [Concomitant]
  19. OMEPRAZOLE [Concomitant]
  20. FERROUS SULFATE TAB [Concomitant]
  21. CYANOCOBALAMIN [Concomitant]
  22. DALTEPARIN [Concomitant]
  23. DOCUSATE [Concomitant]
  24. APAP TAB [Concomitant]

REACTIONS (1)
  - HYPOTENSION [None]
